FAERS Safety Report 9466433 (Version 2)
Quarter: 2013Q3

REPORT INFORMATION
  Report Type: Spontaneous
  Country: GB (occurrence: GB)
  Receive Date: 20130820
  Receipt Date: 20130830
  Transmission Date: 20140515
  Serious: Yes (Other)
  Sender: FDA-Public Use
  Company Number: GB-TEVA-425690ISR

PATIENT
  Sex: Female

DRUGS (2)
  1. WARFARIN SODIUM [Suspect]
  2. ELIQUIS [Suspect]

REACTIONS (3)
  - Limb injury [Unknown]
  - Pain [Unknown]
  - Wound [Recovered/Resolved]
